FAERS Safety Report 4901564-1 (Version None)
Quarter: 2006Q1

REPORT INFORMATION
  Report Type: 
  Country: None (occurrence: None)
  Receive Date: 20060206
  Receipt Date: 20050309
  Transmission Date: 20060701
  Serious: No
  Sender: FDA-Public Use
  Company Number: US-BRISTOL-MYERS SQUIBB COMPANY-12891263

PATIENT
  Age: 50 Year
  Sex: Female
  Weight: 62 kg

DRUGS (4)
  1. TAXOL [Suspect]
     Indication: BREAST CANCER METASTATIC
     Route: 051
     Dates: start: 20050307, end: 20050307
  2. PEPCID [Concomitant]
     Indication: PREMEDICATION
     Route: 042
  3. BENADRYL [Concomitant]
     Indication: PREMEDICATION
     Dosage: 20 MG ON THE DAY PRIOR TO PACLITAXEL INFUSION AND 25 MG ON THE DAY OF INFUSION
     Route: 048
  4. ANTABUSE [Concomitant]

REACTIONS (1)
  - HYPERSENSITIVITY [None]
